FAERS Safety Report 12084249 (Version 3)
Quarter: 2016Q2

REPORT INFORMATION
  Report Type: Spontaneous
  Country: US (occurrence: US)
  Receive Date: 20160217
  Receipt Date: 20160527
  Transmission Date: 20160815
  Serious: Yes (Other)
  Sender: FDA-Public Use
  Company Number: US-GE HEALTHCARE MEDICAL DIAGNOSTICS-OSCN-PR-1602S-0011

PATIENT
  Age: 46 Year
  Sex: Female

DRUGS (9)
  1. OMNISCAN [Suspect]
     Active Substance: GADODIAMIDE
     Indication: RENAL MASS
     Dosage: DOSE NOT REPORTED
     Route: 065
     Dates: start: 20060317, end: 20060317
  2. LASIX [Concomitant]
     Active Substance: FUROSEMIDE
  3. COUMADIN [Concomitant]
     Active Substance: WARFARIN SODIUM
  4. OMNISCAN [Suspect]
     Active Substance: GADODIAMIDE
     Indication: DIAGNOSTIC PROCEDURE
  5. PREDNISONE. [Concomitant]
     Active Substance: PREDNISONE
  6. ENALAPRIL [Concomitant]
     Active Substance: ENALAPRIL
  7. LIPITOR [Concomitant]
     Active Substance: ATORVASTATIN CALCIUM
  8. ORAL CONTRACEPTIVES [Concomitant]
     Active Substance: UNSPECIFIED INGREDIENT
  9. LIPITOR [Concomitant]
     Active Substance: ATORVASTATIN CALCIUM

REACTIONS (1)
  - Nephrogenic systemic fibrosis [Unknown]

NARRATIVE: CASE EVENT DATE: 201511
